FAERS Safety Report 19596476 (Version 2)
Quarter: 2021Q3

REPORT INFORMATION
  Report Type: Spontaneous
  Country: CA (occurrence: CA)
  Receive Date: 20210722
  Receipt Date: 20210728
  Transmission Date: 20211014
  Serious: Yes (Other)
  Sender: FDA-Public Use
  Company Number: CA-TEVA-2021-CA-1933564

PATIENT
  Sex: Female

DRUGS (4)
  1. ETHINYLESTRADIOL/LEVONORGESTREL [Suspect]
     Active Substance: ETHINYL ESTRADIOL\LEVONORGESTREL
     Indication: AUTOIMMUNE DERMATITIS
     Dosage: LOW DOSE OF 0.1MG LEVONORGESTREL AND 0.02MG ETHINYLESTRADIOL
     Route: 048
  2. PREDNISONE. [Suspect]
     Active Substance: PREDNISONE
     Dosage: 50 MILLIGRAM DAILY;
     Route: 048
  3. PREDNISONE. [Suspect]
     Active Substance: PREDNISONE
     Indication: AUTOIMMUNE DERMATITIS
     Dosage: 100 MILLIGRAM DAILY;
     Route: 048
  4. CICLOSPORIN [Concomitant]
     Active Substance: CYCLOSPORINE
     Indication: AUTOIMMUNE DERMATITIS
     Route: 065

REACTIONS (5)
  - Drug ineffective [Unknown]
  - Cushing^s syndrome [Recovered/Resolved]
  - Osteoporosis [Recovering/Resolving]
  - Adrenal insufficiency [Recovered/Resolved]
  - Menopausal symptoms [Recovering/Resolving]

NARRATIVE: CASE EVENT DATE: 201808
